FAERS Safety Report 19923863 (Version 1)
Quarter: 2021Q4

REPORT INFORMATION
  Report Type: Spontaneous
  Country: US (occurrence: US)
  Receive Date: 20211005
  Receipt Date: 20211005
  Transmission Date: 20220303
  Serious: No
  Sender: FDA-Public Use
  Company Number: None

PATIENT

DRUGS (2)
  1. BUPIVACAINE HYDROCHLORIDE [Suspect]
     Active Substance: BUPIVACAINE HYDROCHLORIDE
  2. BIVALIRUDIN [Suspect]
     Active Substance: BIVALIRUDIN
     Route: 042

REACTIONS (3)
  - Product appearance confusion [None]
  - Circumstance or information capable of leading to medication error [None]
  - Wrong drug [None]
